FAERS Safety Report 9565758 (Version 1)
Quarter: 2013Q3

REPORT INFORMATION
  Report Type: Spontaneous
  Country: NL (occurrence: NL)
  Receive Date: 20130930
  Receipt Date: 20130930
  Transmission Date: 20140515
  Serious: Yes (Death)
  Sender: FDA-Public Use
  Company Number: NL-PFIZER INC-2013277469

PATIENT
  Age: 22 Year
  Sex: Female
  Weight: 80 kg

DRUGS (2)
  1. CHAMPIX [Suspect]
     Indication: SMOKING CESSATION THERAPY
     Dosage: 1 MG, 2X/DAY
     Dates: start: 20130607, end: 20130628
  2. MICROGYNON [Concomitant]
     Dosage: 1 DF, 1X/DAY
     Dates: start: 20100101

REACTIONS (2)
  - Completed suicide [Fatal]
  - Depressed mood [Fatal]
